FAERS Safety Report 6448449-X (Version None)
Quarter: 2009Q4

REPORT INFORMATION
  Report Type: 
  Country: None (occurrence: None)
  Receive Date: 20091120
  Receipt Date: 20091116
  Transmission Date: 20100525
  Serious: Yes (Death, Life-Threatening)
  Sender: FDA-Public Use
  Company Number: DE-ASTRAZENECA-2009SE27018

PATIENT
  Age: 74 Year
  Sex: Female

DRUGS (11)
  1. BELOC-ZOK [Suspect]
     Route: 048
  2. SIMVASTATIN [Concomitant]
     Route: 048
  3. APROVEL [Concomitant]
     Route: 048
     Dates: end: 20090902
  4. MARCUMAR [Concomitant]
     Dates: end: 20090908
  5. JATROSOM N [Concomitant]
     Dosage: 10-50 MG DAILY
     Route: 048
     Dates: start: 20090821, end: 20090825
  6. JATROSOM N [Concomitant]
     Route: 048
     Dates: start: 20090826, end: 20090908
  7. HALOPERIDOL [Concomitant]
     Route: 048
     Dates: start: 20090825, end: 20090830
  8. HALOPERIDOL [Concomitant]
     Route: 048
     Dates: start: 20090831, end: 20090902
  9. HALOPERIDOL [Concomitant]
     Route: 048
     Dates: start: 20090903, end: 20090907
  10. IBUPROFEN [Concomitant]
     Route: 048
     Dates: start: 20090907, end: 20090908
  11. PANTOPRAZOLE [Concomitant]
     Route: 048
     Dates: start: 20090807, end: 20090808

REACTIONS (1)
  - HYPONATRAEMIA [None]
